FAERS Safety Report 19815585 (Version 2)
Quarter: 2021Q3

REPORT INFORMATION
  Report Type: Spontaneous
  Country: DE (occurrence: DE)
  Receive Date: 20210909
  Receipt Date: 20210927
  Transmission Date: 20211014
  Serious: Yes (Hospitalization)
  Sender: FDA-Public Use
  Company Number: DE-CELGENEUS-DEU-20210900819

PATIENT
  Age: 81 Year
  Sex: Male
  Weight: 83 kg

DRUGS (29)
  1. AZACITIDINE. [Suspect]
     Active Substance: AZACITIDINE
     Indication: MYELODYSPLASTIC SYNDROME
     Route: 058
     Dates: start: 20201214, end: 20210720
  2. VITAMIN D [Concomitant]
     Active Substance: VITAMIN D NOS
     Indication: VITAMIN SUPPLEMENTATION
     Dosage: 1000 IU (INTERNATIONAL UNIT)
     Route: 065
     Dates: start: 20200813
  3. LACTOBACILLUS UND BIFIDOBACTERIUM [Concomitant]
     Indication: SUPPLEMENTATION THERAPY
     Route: 048
     Dates: start: 20201230
  4. CEFUROXIME. [Concomitant]
     Active Substance: CEFUROXIME
     Indication: INFECTION PROPHYLAXIS
     Dosage: 1000 MILLIGRAM
     Route: 048
     Dates: start: 20210329
  5. POSACONAZOL [Concomitant]
     Active Substance: POSACONAZOLE
     Indication: NEUTROPENIC SEPSIS
     Dosage: 300 MG/H
     Route: 041
     Dates: start: 20210407
  6. AMPHO MORONAL [Concomitant]
     Active Substance: AMPHOTERICIN B
     Indication: MUCOSAL INFECTION
     Route: 048
     Dates: start: 20210415
  7. ADDEL TRACE [Concomitant]
     Active Substance: ELECTROLYTES NOS\MINERALS
     Dosage: 300 MG/250 (ML/H)
     Route: 041
     Dates: start: 20210407
  8. LUTEIN(XANTOFYL) [Concomitant]
     Indication: DRY EYE
     Dosage: 10 MILLIGRAM
     Route: 048
     Dates: start: 2012
  9. PANTOPRAZOL [Concomitant]
     Active Substance: PANTOPRAZOLE SODIUM
     Indication: GASTRITIS
     Dosage: 80 MILLIGRAM
     Route: 048
     Dates: start: 20210121
  10. KALIUMCHLORID [Concomitant]
     Active Substance: POTASSIUM CHLORIDE
     Dosage: 2400 MILLIGRAM
     Route: 048
     Dates: start: 20210410
  11. ASS (ACETYL SALICYLIC ACID) [Concomitant]
     Dosage: 100 MILLIGRAM
     Route: 048
     Dates: start: 20210411
  12. POSACONAZOL [Concomitant]
     Active Substance: POSACONAZOLE
     Dosage: 300 MILLIGRAM
     Route: 048
     Dates: start: 20210409
  13. ADDEL TRACE [Concomitant]
     Active Substance: ELECTROLYTES NOS\MINERALS
     Indication: NEUTROPENIC SEPSIS
     Dosage: 100 ML/H
     Route: 041
     Dates: start: 20210407
  14. VENETOCLAX. [Suspect]
     Active Substance: VENETOCLAX
     Dosage: 50 MILLIGRAM
     Route: 048
     Dates: start: 20210510, end: 20210725
  15. PROSTAGUT [Concomitant]
     Indication: BENIGN PROSTATIC HYPERPLASIA
     Dosage: 160/120
     Route: 048
     Dates: start: 20201215
  16. ASS (ACETYL SALICYLIC ACID) [Concomitant]
     Indication: CORONARY ARTERY DISEASE
     Dosage: 100 MILLIGRAM
     Route: 048
     Dates: start: 20210301
  17. VENETOCLAX. [Suspect]
     Active Substance: VENETOCLAX
     Indication: MYELODYSPLASTIC SYNDROME
     Dosage: 400 MILLIGRAM
     Route: 048
     Dates: start: 20201214, end: 20210321
  18. TOREM [Concomitant]
     Active Substance: TORSEMIDE
     Indication: HAEMATOMA
     Dosage: 5 MILLIGRAM
     Route: 048
     Dates: start: 20210301
  19. POSACONAZOL [Concomitant]
     Active Substance: POSACONAZOLE
     Dosage: 300 MILLIGRAM
     Route: 048
     Dates: start: 20210409
  20. TAMSULOSIN [Concomitant]
     Active Substance: TAMSULOSIN
     Dosage: .4 MILLIGRAM
     Route: 048
     Dates: start: 20210411
  21. TOREM [Concomitant]
     Active Substance: TORSEMIDE
     Dosage: 10 MILLIGRAM
     Route: 048
     Dates: start: 20210412
  22. POSACONAZOL [Concomitant]
     Active Substance: POSACONAZOLE
     Dosage: 300 MILLIGRAM
     Route: 048
     Dates: start: 20210510
  23. GRANISETRON BETA [Concomitant]
     Indication: PROPHYLAXIS OF NAUSEA AND VOMITING
     Route: 048
     Dates: start: 20201214
  24. KALIUMCHLORID [Concomitant]
     Active Substance: POTASSIUM CHLORIDE
     Indication: PROPHYLAXIS
     Dosage: 600 MILLIGRAM
     Route: 048
     Dates: start: 20210301
  25. ALLOPURINOL. [Concomitant]
     Active Substance: ALLOPURINOL
     Indication: PROPHYLAXIS
     Dosage: 100 MILLIGRAM
     Route: 048
     Dates: start: 20201214, end: 20210118
  26. MAGALDRAT [Concomitant]
     Active Substance: MAGALDRATE
     Indication: GASTRITIS
     Route: 048
     Dates: start: 20210121
  27. HYDRATION WETTING DROPS FOR EYES (SYSTANE) [Concomitant]
     Indication: DRY EYE
     Route: 047
     Dates: start: 20200502
  28. POSACONAZOL [Concomitant]
     Active Substance: POSACONAZOLE
     Route: 048
     Dates: start: 20210703
  29. TAMSULOSIN [Concomitant]
     Active Substance: TAMSULOSIN
     Indication: BENIGN PROSTATIC HYPERPLASIA
     Dosage: 300MG/250 (ML/H)
     Route: 041
     Dates: start: 20210407

REACTIONS (2)
  - Anaemia [Not Recovered/Not Resolved]
  - Syncope [Not Recovered/Not Resolved]

NARRATIVE: CASE EVENT DATE: 20210826
